FAERS Safety Report 15786918 (Version 2)
Quarter: 2019Q1

REPORT INFORMATION
  Report Type: Spontaneous
  Country: JP (occurrence: JP)
  Receive Date: 20190103
  Receipt Date: 20190201
  Transmission Date: 20190417
  Serious: Yes (Hospitalization)
  Sender: FDA-Public Use
  Company Number: JP-TEVA-2018-JP-994064

PATIENT
  Age: 8 Decade
  Sex: Female

DRUGS (3)
  1. BENDAMUSTINE HYDROCHLORIDE. [Suspect]
     Active Substance: BENDAMUSTINE HYDROCHLORIDE
     Indication: EXTRANODAL MARGINAL ZONE B-CELL LYMPHOMA (MALT TYPE)
     Dosage: UNK, CYCLIC (CYCLE 1)
     Route: 042
     Dates: start: 20180903, end: 20180904
  2. BENDAMUSTINE HYDROCHLORIDE. [Suspect]
     Active Substance: BENDAMUSTINE HYDROCHLORIDE
     Dosage: UNK, CYCLIC (CYCLE 2)
     Route: 042
     Dates: start: 20181104, end: 20181105
  3. BENDAMUSTINE HYDROCHLORIDE. [Suspect]
     Active Substance: BENDAMUSTINE HYDROCHLORIDE
     Dosage: UNK, CYCLIC (CYCLE 3)
     Route: 042

REACTIONS (1)
  - Purpura [Recovered/Resolved]

NARRATIVE: CASE EVENT DATE: 20181210
